FAERS Safety Report 9944729 (Version 1)
Quarter: 2014Q1

REPORT INFORMATION
  Report Type: Report from Study
  Country: US (occurrence: US)
  Receive Date: 20140303
  Receipt Date: 20140303
  Transmission Date: 20141002
  Serious: No
  Sender: FDA-Public Use
  Company Number: US-ABBVIE-13P-163-1054354-00

PATIENT
  Age: 50 Year
  Sex: Female

DRUGS (10)
  1. HUMIRA [Suspect]
     Indication: ANKYLOSING SPONDYLITIS
     Dates: start: 20120225
  2. LAMICTAL [Concomitant]
     Indication: BIPOLAR DISORDER
     Dosage: 100 MG 1 TAB AT BEDTIME
  3. DEPAKOTE [Concomitant]
     Indication: BIPOLAR DISORDER
     Dosage: 500 MG 3 TABS AT BEDTIME
  4. ABILIFY [Concomitant]
     Indication: BIPOLAR DISORDER
     Dosage: 30 MG 1 TAB AT BEDTIME
  5. BYSTOLIC [Concomitant]
     Indication: HYPERTENSION
     Dosage: 5 MG 1 TAB IN THE MORNING
  6. CLONIDINE [Concomitant]
     Indication: HYPERTENSION
     Dosage: 0.02 MG 1 TAB IN THE MORNING
  7. TOPAMAX [Concomitant]
     Indication: TARSAL TUNNEL SYNDROME
     Dosage: TWO TO THREE TIMES DAILY
  8. HYDROCODONE [Concomitant]
     Indication: PAIN
     Dosage: 5/500 1 TAB EVERY FOUR TO SIX HOURS
  9. GABAPENTIN [Concomitant]
     Indication: TARSAL TUNNEL SYNDROME
     Dates: start: 20130222
  10. PREDNISONE [Concomitant]
     Dosage: TAPERING DOWN TO 2.5

REACTIONS (7)
  - Dysgeusia [Recovered/Resolved]
  - Injection site haemorrhage [Recovered/Resolved]
  - Injection site pain [Unknown]
  - Injection site erythema [Unknown]
  - Injection site oedema [Unknown]
  - Injection site pruritus [Unknown]
  - Injection site warmth [Unknown]
